FAERS Safety Report 9612536 (Version 3)
Quarter: 2013Q4

REPORT INFORMATION
  Report Type: Spontaneous
  Country: GB (occurrence: GB)
  Receive Date: 20131010
  Receipt Date: 20131031
  Transmission Date: 20140711
  Serious: Yes (Hospitalization, Other)
  Sender: FDA-Public Use
  Company Number: GB-PFIZER INC-2013287809

PATIENT
  Age: 45 Year
  Sex: Male

DRUGS (3)
  1. PREGABALIN [Suspect]
     Indication: SOCIAL PHOBIA
     Dosage: UNK
     Route: 048
  2. BACLOFEN [Suspect]
     Indication: SOCIAL PHOBIA
     Dosage: 250 MG, UNK
     Route: 048
     Dates: start: 20130114, end: 20130209
  3. BACLOFEN [Suspect]
     Dosage: 100 MG, UNK
     Route: 048
     Dates: start: 20130213, end: 20130213

REACTIONS (5)
  - Overdose [Unknown]
  - Withdrawal syndrome [Recovered/Resolved]
  - Hallucinations, mixed [Recovered/Resolved]
  - Bradycardia [Recovered/Resolved]
  - Tachycardia [Recovered/Resolved]
